FAERS Safety Report 4351498-9 (Version None)
Quarter: 2004Q2

REPORT INFORMATION
  Report Type: 
  Country: None (occurrence: None)
  Receive Date: 20040428
  Receipt Date: 20040413
  Transmission Date: 20050107
  Serious: Yes (Hospitalization)
  Sender: FDA-Public Use
  Company Number: 196155

PATIENT
  Age: 52 Year
  Sex: Female
  Weight: 79.3795 kg

DRUGS (9)
  1. AVONEX [Suspect]
     Indication: MULTIPLE SCLEROSIS
     Dosage: 30 MCG QW IM
     Route: 030
     Dates: start: 20010101, end: 20030101
  2. PROZAC [Concomitant]
  3. LEXAPRO [Concomitant]
  4. MORPHINE [Concomitant]
  5. METHADONE HCL [Concomitant]
  6. ROBINUL [Concomitant]
  7. ASACOL [Concomitant]
  8. KLONOPIN [Concomitant]
  9. VALIUM [Concomitant]

REACTIONS (4)
  - CONDITION AGGRAVATED [None]
  - CROHN'S DISEASE [None]
  - PULMONARY FIBROSIS [None]
  - UPPER RESPIRATORY TRACT INFECTION [None]
